FAERS Safety Report 4366669-5 (Version None)
Quarter: 2004Q2

REPORT INFORMATION
  Report Type: 
  Country: None (occurrence: None)
  Receive Date: 20040527
  Receipt Date: 20040319
  Transmission Date: 20050107
  Serious: No
  Sender: FDA-Public Use
  Company Number: US-GLAXOSMITHKLINE-A0503532A

PATIENT
  Age: 48 Year
  Sex: Male

DRUGS (1)
  1. AVODART [Suspect]
     Indication: BENIGN PROSTATIC HYPERPLASIA
     Dosage: .5MG PER DAY
     Route: 048
     Dates: start: 20040317, end: 20040317

REACTIONS (9)
  - CONFUSIONAL STATE [None]
  - DISTURBANCE IN ATTENTION [None]
  - DYSPNOEA [None]
  - GINGIVAL SWELLING [None]
  - HEADACHE [None]
  - HEART RATE INCREASED [None]
  - PARAESTHESIA [None]
  - SNEEZING [None]
  - URTICARIA [None]
